FAERS Safety Report 8204582-3 (Version None)
Quarter: 2012Q1

REPORT INFORMATION
  Report Type: 
  Country: None (occurrence: None)
  Receive Date: 20120313
  Receipt Date: 20120307
  Transmission Date: 20120608
  Serious: Yes (Other)
  Sender: FDA-Public Use
  Company Number: US-PFIZER INC-2011299959

PATIENT
  Sex: Female
  Weight: 68.03 kg

DRUGS (7)
  1. LYRICA [Suspect]
     Indication: FIBROMYALGIA
     Dosage: UNK
     Dates: end: 20120201
  2. LITHIUM CARBONATE [Suspect]
     Indication: BIPOLAR DISORDER
     Dosage: UNK
  3. ALPRAZOLAM [Concomitant]
     Dosage: UNK
  4. XANAX [Suspect]
     Dosage: UNK
  5. ZOLOFT [Concomitant]
     Dosage: UNK
  6. BENZTROPINE MESYLATE [Concomitant]
     Dosage: 1 MG
  7. NEURONTIN [Suspect]
     Dosage: UNK

REACTIONS (10)
  - BURNING SENSATION [None]
  - VOMITING [None]
  - MALAISE [None]
  - INSOMNIA [None]
  - HALLUCINATION [None]
  - PAIN IN EXTREMITY [None]
  - EMOTIONAL DISORDER [None]
  - DRUG HYPERSENSITIVITY [None]
  - WITHDRAWAL SYNDROME [None]
  - COMA [None]
